FAERS Safety Report 5625480-5 (Version None)
Quarter: 2008Q1

REPORT INFORMATION
  Report Type: 
  Country: None (occurrence: None)
  Receive Date: 20080207
  Receipt Date: 20080124
  Transmission Date: 20080703
  Serious: Yes (Death, Hospitalization)
  Sender: FDA-Public Use
  Company Number: B0506202A

PATIENT
  Age: 64 Year
  Sex: Female

DRUGS (6)
  1. CEFTAZIDIME SODIUM [Suspect]
     Indication: ACUTE MYELOID LEUKAEMIA
  2. CIPROFLOXACIN [Suspect]
  3. FLUCLOXACILLIN SODIUM (FORMULATION UNKNOWN)(GENERIC) (FLUCLOXACILLIN S [Suspect]
     Dosage: 500 MG/FOUR TIMES PER DAY
  4. RIFAMPICIN [Suspect]
     Dosage: 300 MG/PER DAY
  5. ISONIAZID [Suspect]
     Dosage: 150 MG/PER DAY
  6. PYRAZINAMIDE [Concomitant]

REACTIONS (11)
  - CEREBROVASCULAR ACCIDENT [None]
  - DIARRHOEA [None]
  - DISEASE PROGRESSION [None]
  - ECTHYMA [None]
  - ENDOCARDITIS CANDIDA [None]
  - FUNGAL SEPSIS [None]
  - GANGRENE [None]
  - PSEUDOMONAS INFECTION [None]
  - PURPURA [None]
  - STAPHYLOCOCCAL INFECTION [None]
  - VOMITING [None]
